FAERS Safety Report 19140210 (Version 1)
Quarter: 2021Q2

REPORT INFORMATION
  Report Type: Spontaneous
  Country: IT (occurrence: IT)
  Receive Date: 20210415
  Receipt Date: 20210415
  Transmission Date: 20210717
  Serious: Yes (Other)
  Sender: FDA-Public Use
  Company Number: IT-SA-2021SA122297

PATIENT
  Age: 48 Year
  Sex: Female
  Weight: 63 kg

DRUGS (3)
  1. FASTURTEC [Suspect]
     Active Substance: RASBURICASE
     Indication: CHEMOTHERAPY SIDE EFFECT PROPHYLAXIS
     Dosage: 7.5 MG
     Route: 042
     Dates: start: 20200928, end: 20200929
  2. OMEPRAZOLE. [Concomitant]
     Active Substance: OMEPRAZOLE
     Dosage: 20 MG
     Route: 048
     Dates: start: 20200928, end: 20210331
  3. METHYLPREDNISOLONE. [Concomitant]
     Active Substance: METHYLPREDNISOLONE
     Dosage: UNK
     Dates: start: 20200928, end: 20201103

REACTIONS (5)
  - Haemoglobin decreased [Recovered/Resolved]
  - Blood bilirubin unconjugated increased [Recovered/Resolved]
  - Blood lactate dehydrogenase increased [Recovered/Resolved]
  - Haptoglobin decreased [Recovered/Resolved]
  - Blood bilirubin increased [Recovered/Resolved]

NARRATIVE: CASE EVENT DATE: 20200929
